FAERS Safety Report 15798319 (Version 1)
Quarter: 2019Q1

REPORT INFORMATION
  Report Type: Spontaneous
  Country: IT (occurrence: IT)
  Receive Date: 20190108
  Receipt Date: 20190108
  Transmission Date: 20190417
  Serious: Yes (Hospitalization)
  Sender: FDA-Public Use
  Company Number: IT-TEVA-2019-IT-996147

PATIENT
  Age: 67 Year
  Sex: Female

DRUGS (6)
  1. CARDIRENE 75 MG [Concomitant]
     Active Substance: ASPIRIN DL-LYSINE
  2. FOLINA [Concomitant]
     Active Substance: FOLIC ACID
  3. METHOTREXATE. [Suspect]
     Active Substance: METHOTREXATE
     Indication: RHEUMATOID ARTHRITIS
     Route: 042
     Dates: start: 20180101, end: 20180128
  4. TRIATEC 2,5 MG COMPRESSE [Concomitant]
     Active Substance: RAMIPRIL
  5. DIBASE [Concomitant]
     Active Substance: CHOLECALCIFEROL
  6. SIMVASTATIN. [Concomitant]
     Active Substance: SIMVASTATIN

REACTIONS (4)
  - Bronchitis [Unknown]
  - Chest pain [Unknown]
  - Respiratory failure [Unknown]
  - Asthenia [Unknown]

NARRATIVE: CASE EVENT DATE: 20180121
